FAERS Safety Report 5997013-5 (Version None)
Quarter: 2008Q4

REPORT INFORMATION
  Report Type: 
  Country: None (occurrence: None)
  Receive Date: 20081212
  Receipt Date: 20081031
  Transmission Date: 20090506
  Serious: No
  Sender: FDA-Public Use
  Company Number: US-ABBOTT-08P-163-0485082-00

PATIENT
  Sex: Male

DRUGS (5)
  1. HUMIRA [Suspect]
     Indication: PSORIASIS
     Route: 058
  2. HUMIRA [Suspect]
     Route: 058
     Dates: end: 20081031
  3. VARDENASIL [Concomitant]
     Indication: ERECTILE DYSFUNCTION
     Route: 048
  4. DOVANEX [Concomitant]
     Indication: PSORIASIS
     Route: 061
  5. FLUOCINONIDE [Concomitant]
     Indication: PSORIASIS
     Route: 061

REACTIONS (2)
  - MYDRIASIS [None]
  - VISION BLURRED [None]
